FAERS Safety Report 24970659 (Version 6)
Quarter: 2025Q4

REPORT INFORMATION
  Report Type: Other
  Country: US (occurrence: US)
  Receive Date: 20250214
  Receipt Date: 20251019
  Transmission Date: 20260117
  Serious: No
  Sender: TRAVERE THERAPEUTICS
  Company Number: US-TRAVERE-2025TVT00189

PATIENT
  Age: 58 Year
  Sex: Male

DRUGS (3)
  1. FILSPARI [Suspect]
     Active Substance: SPARSENTAN
     Indication: IgA nephropathy
     Route: 048
     Dates: start: 20250126
  2. FILSPARI [Suspect]
     Active Substance: SPARSENTAN
     Indication: Chronic kidney disease
     Dosage: EXPIRY DATE:31-AUG-2026
     Route: 048
  3. HYDROXYZINE [Concomitant]
     Active Substance: HYDROXYZINE HYDROCHLORIDE

REACTIONS (8)
  - Weight decreased [None]
  - Cough [Recovered/Resolved]
  - Tinnitus [None]
  - Endolymphatic hydrops [Unknown]
  - Deafness [None]
  - Memory impairment [Unknown]
  - Panic attack [Unknown]
  - Product administration error [Unknown]
